FAERS Safety Report 5122856-X (Version None)
Quarter: 2006Q4

REPORT INFORMATION
  Report Type: 
  Country: None (occurrence: None)
  Receive Date: 20061004
  Receipt Date: 20061004
  Transmission Date: 20070319
  Serious: Yes (Life-Threatening)
  Sender: FDA-Public Use
  Company Number: None

PATIENT
  Age: 74 Year
  Sex: Male
  Weight: 104.3273 kg

DRUGS (1)
  1. FLUORESCEIN DYE [Suspect]
     Indication: OPHTHALMOLOGICAL EXAMINATION
     Dates: start: 20060921

REACTIONS (7)
  - CHEST PAIN [None]
  - GASTROINTESTINAL HAEMORRHAGE [None]
  - HAEMATURIA [None]
  - NAUSEA [None]
  - PANCREATITIS [None]
  - SYNCOPE [None]
  - VOMITING [None]
